FAERS Safety Report 5286652-5 (Version None)
Quarter: 2007Q2

REPORT INFORMATION
  Report Type: 
  Country: None (occurrence: None)
  Receive Date: 20070404
  Receipt Date: 20070327
  Transmission Date: 20071010
  Serious: Yes (Life-Threatening, Hospitalization)
  Sender: FDA-Public Use
  Company Number: VN-GLAXOSMITHKLINE-B0464958A

PATIENT
  Age: 20 Year
  Sex: Female

DRUGS (2)
  1. AUGMENTIN '125' [Suspect]
     Indication: NASAL OPERATION
     Dosage: 1G PER DAY
     Route: 042
     Dates: start: 20070321, end: 20070321
  2. CIPROFLOXACIN HCL [Concomitant]

REACTIONS (8)
  - ANAPHYLACTIC SHOCK [None]
  - BLOOD PRESSURE DECREASED [None]
  - DYSPNOEA [None]
  - FLUSHING [None]
  - HAEMATEMESIS [None]
  - HYPERHIDROSIS [None]
  - PULSE ABSENT [None]
  - RASH [None]
